FAERS Safety Report 4432345-3 (Version None)
Quarter: 2004Q3

REPORT INFORMATION
  Report Type: 
  Country: None (occurrence: None)
  Receive Date: 20040820
  Receipt Date: 20040813
  Transmission Date: 20050211
  Serious: Yes (Hospitalization, Other)
  Sender: FDA-Public Use
  Company Number: KII-2004-0012990

PATIENT
  Age: 44 Year
  Sex: Male

DRUGS (4)
  1. MORPHINE SULFATE [Suspect]
     Dosage: ORAL
     Route: 048
  2. AMPHETAMINE SULFATE TAB [Suspect]
  3. METAMFETAMINE HYDROCHLORIDE (METAMFETAMINE HYDROCHLORIDE) [Suspect]
  4. PAINT, VARNISH, OR LACQUER () [Suspect]
     Dosage: INHALATION
     Route: 055

REACTIONS (5)
  - AGITATION [None]
  - BLOOD PRESSURE INCREASED [None]
  - HEART RATE INCREASED [None]
  - OXYGEN SATURATION DECREASED [None]
  - POLYSUBSTANCE ABUSE [None]
